FAERS Safety Report 4755902-3 (Version None)
Quarter: 2005Q3

REPORT INFORMATION
  Report Type: 
  Country: None (occurrence: None)
  Receive Date: 20050826
  Receipt Date: 20050405
  Transmission Date: 20060218
  Serious: Yes (Other)
  Sender: FDA-Public Use
  Company Number: USA-2003-0009610

PATIENT
  Age: 39 Year
  Sex: Male

DRUGS (16)
  1. OXYCONTIN [Suspect]
     Indication: PAIN
     Dosage: 40 MG, BID
  2. OXYCODONE HCL [Concomitant]
  3. NEURONTIN [Concomitant]
  4. WELLBUTRIN [Concomitant]
  5. XANAX [Concomitant]
  6. ASPIRIN [Concomitant]
  7. ALBUTEROL [Concomitant]
  8. LESCOL [Concomitant]
  9. MORPHINE SULFATE [Concomitant]
  10. AMOXICILLIN [Concomitant]
  11. LODINE [Concomitant]
  12. LACTOSE [Concomitant]
  13. LACTULOSE [Concomitant]
  14. TRAMADOL HCL [Concomitant]
  15. RANITIDINE HCL [Concomitant]
  16. CIPRO [Concomitant]

REACTIONS (23)
  - ANOREXIA [None]
  - ANXIETY [None]
  - BACK PAIN [None]
  - BENIGN PROSTATIC HYPERPLASIA [None]
  - CHEST PAIN [None]
  - CONDITION AGGRAVATED [None]
  - CONSTIPATION [None]
  - DEPRESSION [None]
  - DRUG DEPENDENCE [None]
  - DRUG WITHDRAWAL SYNDROME [None]
  - DYSPNOEA [None]
  - INADEQUATE ANALGESIA [None]
  - IRRITABILITY [None]
  - MICTURITION DISORDER [None]
  - MOOD ALTERED [None]
  - PAIN [None]
  - PENILE DISCHARGE [None]
  - POLLAKIURIA [None]
  - POLYDIPSIA [None]
  - PROSTATE EXAMINATION ABNORMAL [None]
  - SEXUAL DYSFUNCTION [None]
  - TOOTHACHE [None]
  - VISION BLURRED [None]
